FAERS Safety Report 16037209 (Version 4)
Quarter: 2019Q3

REPORT INFORMATION
  Report Type: Report from Study
  Country: US (occurrence: US)
  Receive Date: 20190305
  Receipt Date: 20190905
  Transmission Date: 20191004
  Serious: Yes (Disabling)
  Sender: FDA-Public Use
  Company Number: US-AMGEN-USASL2019023176

PATIENT
  Age: 76 Year
  Sex: Female
  Weight: 88.89 kg

DRUGS (3)
  1. REPATHA [Suspect]
     Active Substance: EVOLOCUMAB
     Indication: BLOOD CHOLESTEROL INCREASED
     Dosage: 140 MILLIGRAM, Q2WK
     Route: 065
  2. REPATHA [Suspect]
     Active Substance: EVOLOCUMAB
     Indication: HYPERLIPIDAEMIA
  3. REPATHA [Suspect]
     Active Substance: EVOLOCUMAB
     Indication: BLOOD CHOLESTEROL ABNORMAL

REACTIONS (13)
  - Injection site pain [Unknown]
  - Injection site bruising [Recovered/Resolved]
  - Influenza [Unknown]
  - Wrong technique in product usage process [Unknown]
  - Vitreous floaters [Unknown]
  - Memory impairment [Unknown]
  - Incorrect dose administered [Unknown]
  - Injection site haemorrhage [Recovered/Resolved]
  - Bronchitis [Recovering/Resolving]
  - Injection site nodule [Unknown]
  - Injection site swelling [Recovered/Resolved]
  - Fatigue [Unknown]
  - Accidental exposure to product [Unknown]
